FAERS Safety Report 9995220 (Version 2)
Quarter: 2014Q1

REPORT INFORMATION
  Report Type: Spontaneous
  Country: DE (occurrence: None)
  Receive Date: 20140307
  Receipt Date: 20140313
  Transmission Date: 20141002
  Serious: Yes (Hospitalization, Congenital Anomaly, Other)
  Sender: FDA-Public Use
  Company Number: AUR-APL-2014-02224

PATIENT
  Age: 1 Day
  Sex: Male
  Weight: 2.08 kg

DRUGS (4)
  1. LAMOTRIGINE (LAMOTRIGINE) [Suspect]
     Indication: BIPOLAR DISORDER
     Route: 048
     Dates: start: 20120407, end: 20121206
  2. SERTRALINE (SERTRALINE) [Suspect]
     Indication: DEPRESSION
     Route: 048
     Dates: start: 20120407, end: 20121206
  3. L-THYROXIN HENNING (LEVOTHYROXINE SODIUM) [Concomitant]
  4. CORDES BOP S (BENZOYL PEROXIDE) [Concomitant]

REACTIONS (7)
  - Caesarean section [None]
  - Apgar score low [None]
  - Polydactyly [None]
  - Maternal drugs affecting foetus [None]
  - Premature baby [None]
  - Foetal exposure during pregnancy [None]
  - Congenital anomaly [None]
